FAERS Safety Report 8071548-6 (Version None)
Quarter: 2012Q1

REPORT INFORMATION
  Report Type: 
  Country: None (occurrence: None)
  Receive Date: 20120125
  Receipt Date: 20120118
  Transmission Date: 20120608
  Serious: Yes (Other)
  Sender: FDA-Public Use
  Company Number: US-ABBOTT-12P-163-0894760-00

PATIENT
  Sex: Male
  Weight: 102.15 kg

DRUGS (3)
  1. ANDROGEL [Suspect]
     Indication: BLOOD TESTOSTERONE DECREASED
     Dates: start: 20050101, end: 20100401
  2. ANDROGEL [Suspect]
     Dates: start: 20100401
  3. OXYCODONE HCL [Concomitant]
     Indication: PAIN

REACTIONS (3)
  - DEPENDENCE [None]
  - ARTHRALGIA [None]
  - ANGER [None]
